FAERS Safety Report 9929332 (Version 2)
Quarter: 2014Q1

REPORT INFORMATION
  Report Type: Report from Study
  Country: JP (occurrence: JP)
  Receive Date: 20140227
  Receipt Date: 20140331
  Transmission Date: 20141002
  Serious: Yes (Hospitalization)
  Sender: FDA-Public Use
  Company Number: JP-TAKEDA-2014TJP001842

PATIENT
  Age: 79 Year
  Sex: Male
  Weight: 64.5 kg

DRUGS (10)
  1. ALOGLIPTIN [Suspect]
     Indication: TYPE 2 DIABETES MELLITUS
     Dosage: 25 MG, QD
     Route: 048
     Dates: start: 20121226
  2. BAYASPIRIN [Concomitant]
     Dosage: UNK
     Route: 048
  3. AMLODIPINE BESILATE [Concomitant]
     Dosage: UNK
     Route: 048
  4. CRESTOR [Concomitant]
     Dosage: UNK
     Route: 048
  5. NEXIUM                             /01479302/ [Concomitant]
     Dosage: UNK
     Route: 048
  6. TRYPTANOL                          /00002202/ [Concomitant]
     Dosage: UNK
     Route: 048
  7. PLAVIX [Concomitant]
     Dosage: UNK
     Route: 048
  8. ITOROL [Concomitant]
     Dosage: UNK
     Route: 048
  9. SORENTMIN [Concomitant]
     Dosage: UNK
     Route: 048
  10. URIEF [Concomitant]
     Dosage: UNK
     Route: 048

REACTIONS (2)
  - Angina unstable [Recovered/Resolved]
  - Condition aggravated [Recovered/Resolved]
